FAERS Safety Report 6151952-3 (Version None)
Quarter: 2009Q2

REPORT INFORMATION
  Report Type: 
  Country: None (occurrence: None)
  Receive Date: 20090410
  Receipt Date: 20090402
  Transmission Date: 20091009
  Serious: Yes (Other)
  Sender: FDA-Public Use
  Company Number: US-GENENTECH-280581

PATIENT
  Age: 10 Year
  Sex: Female

DRUGS (1)
  1. XOLAIR [Suspect]
     Indication: ASTHMA
     Dosage: UNK
     Dates: start: 20080101

REACTIONS (3)
  - ANAPHYLACTOID REACTION [None]
  - HEADACHE [None]
  - PYREXIA [None]
